FAERS Safety Report 6023249-3 (Version None)
Quarter: 2008Q4

REPORT INFORMATION
  Report Type: 
  Country: None (occurrence: None)
  Receive Date: 20081230
  Receipt Date: 20081219
  Transmission Date: 20090506
  Serious: Yes (Hospitalization, Other)
  Sender: FDA-Public Use
  Company Number: CA-ELI_LILLY_AND_COMPANY-CA200812005286

PATIENT
  Age: 57 Year
  Sex: Female

DRUGS (6)
  1. FORTEO [Suspect]
     Indication: OSTEOPOROSIS
     Dosage: 20 UG, DAILY (1/D)
     Route: 058
     Dates: start: 20070814
  2. REACTINE [Concomitant]
  3. COSOPT [Concomitant]
  4. ALPHAGAN [Concomitant]
  5. CALCIUM CARBONATE [Concomitant]
  6. VITAMIN D [Concomitant]

REACTIONS (4)
  - DEEP VEIN THROMBOSIS [None]
  - FALL [None]
  - PAIN IN EXTREMITY [None]
  - PULMONARY EMBOLISM [None]
